FAERS Safety Report 5928700-2 (Version None)
Quarter: 2008Q3

REPORT INFORMATION
  Report Type: 
  Country: None (occurrence: None)
  Receive Date: 20080923
  Receipt Date: 20080625
  Transmission Date: 20090109
  Serious: Yes (Hospitalization)
  Sender: FDA-Public Use
  Company Number: WAES 0806USA08760

PATIENT

DRUGS (2)
  1. VYTORIN [Suspect]
     Indication: HYPERCHOLESTEROLAEMIA
     Dosage: 10-20 MG/DAILY/PO
     Route: 048
  2. TRICOR [Concomitant]

REACTIONS (2)
  - HEPATIC ENZYME INCREASED [None]
  - PANCREATITIS [None]
